FAERS Safety Report 7034870-8 (Version None)
Quarter: 2010Q4

REPORT INFORMATION
  Report Type: 
  Country: None (occurrence: None)
  Receive Date: 20101008
  Receipt Date: 20101001
  Transmission Date: 20110411
  Serious: Yes (Hospitalization, Other)
  Sender: FDA-Public Use
  Company Number: US-PFIZER INC-2010083007

PATIENT
  Sex: Female

DRUGS (6)
  1. CHANTIX [Suspect]
     Indication: SMOKING CESSATION THERAPY
     Dosage: UNK
     Dates: start: 20070915, end: 20071001
  2. VALIUM [Concomitant]
     Indication: MUSCLE RELAXANT THERAPY
     Dosage: UNK
     Dates: start: 19990101
  3. DEMEROL [Concomitant]
     Indication: MUSCLE SPASMS
     Dosage: UNK
     Dates: start: 19990101
  4. PROMETHAZINE HYDROCHLORIDE [Concomitant]
     Indication: ABDOMINAL DISCOMFORT
     Dosage: UNK
     Dates: start: 19990101
  5. KEPPRA [Concomitant]
     Indication: CONVULSION
     Dosage: UNK
     Dates: start: 20060801
  6. BENAZEPRIL [Concomitant]
     Indication: BLOOD PRESSURE
     Dosage: UNK
     Dates: start: 19990101

REACTIONS (5)
  - AGGRESSION [None]
  - DEPRESSION [None]
  - HOMICIDAL IDEATION [None]
  - PARANOIA [None]
  - SUICIDAL IDEATION [None]
